FAERS Safety Report 8853972 (Version 1)
Quarter: 2012Q4

REPORT INFORMATION
  Report Type: 
  Country: DK (occurrence: DK)
  Receive Date: 20121022
  Receipt Date: 20121022
  Transmission Date: 20130627
  Serious: Yes (Congenital Anomaly)
  Sender: FDA-Public Use
  Company Number: DK-MYLANLABS-2012S1021574

PATIENT

DRUGS (3)
  1. LAMOTRIGINE [Suspect]
     Route: 064
  2. LEVETIRACETAM [Suspect]
     Route: 064
  3. VALPROIC ACID [Suspect]
     Route: 064

REACTIONS (2)
  - Craniosynostosis [Unknown]
  - Exposure during pregnancy [Unknown]
